FAERS Safety Report 13269140 (Version 1)
Quarter: 2017Q1

REPORT INFORMATION
  Report Type: Spontaneous
  Country: US (occurrence: US)
  Receive Date: 20170224
  Receipt Date: 20170224
  Transmission Date: 20170428
  Serious: Yes (Other)
  Sender: FDA-Public Use
  Company Number: US-PFIZER INC-2017078844

PATIENT
  Age: 56 Year
  Sex: Female

DRUGS (12)
  1. GENOTROPIN MQ [Suspect]
     Active Substance: SOMATROPIN
     Indication: GROWTH HORMONE DEFICIENCY
     Dosage: 0.2 MG, DAILY (7 DAYS/WEEK)
     Route: 058
     Dates: start: 2015
  2. GENOTROPIN MQ [Suspect]
     Active Substance: SOMATROPIN
     Dosage: 0.4 MG, 1X/DAY 5 DAYS PER WEEK (SKIP SUNDAY/THURSDAY)
     Route: 058
  3. FLORINEF ACETATE [Concomitant]
     Active Substance: FLUDROCORTISONE ACETATE
     Dosage: 0.15 MG, DAILY (1 1/2 TABLETS DAILY)
     Route: 048
  4. VITAMIN C [Concomitant]
     Active Substance: ASCORBIC ACID
     Dosage: 500 MG, 2X/DAY
     Route: 048
  5. MAGNESIUM CITRATE. [Concomitant]
     Active Substance: MAGNESIUM CITRATE
     Dosage: 600 MG, DAILY
     Route: 048
  6. COUMADIN [Concomitant]
     Active Substance: WARFARIN SODIUM
     Dosage: 7.5 MG MONDAY,TUESDAY,WEDNESDAY,THURSDAY,FRIDAY AND 5 MG SUNDAY)
     Route: 048
  7. DHEA [Concomitant]
     Active Substance: PRASTERONE
     Dosage: 10 MG, UNK
     Route: 048
  8. VAGIFEM [Concomitant]
     Active Substance: ESTRADIOL
     Dosage: 10 UG, 2X/WEEK
     Route: 067
  9. METHENAMINE HIPPURATE. [Concomitant]
     Active Substance: METHENAMINE HIPPURATE
     Dosage: 1 G, DAILY
     Route: 048
  10. BACTROBAN [Concomitant]
     Active Substance: MUPIROCIN\MUPIROCIN CALCIUM
     Dosage: 1 DF, WEEKLY
     Route: 061
  11. GENOTROPIN MQ [Suspect]
     Active Substance: SOMATROPIN
     Dosage: 1X/DAY (0.2MG 5 DAYS/WEEK AND 0.4MG 2 DAYS/WEEK)
     Route: 058
  12. DHEA [Concomitant]
     Active Substance: PRASTERONE
     Dosage: 15 MG, UNK
     Route: 048

REACTIONS (18)
  - Malaise [Unknown]
  - Eye swelling [Unknown]
  - Blood cholesterol increased [Unknown]
  - Sinus pain [Unknown]
  - Depressed mood [Unknown]
  - Oedema peripheral [Unknown]
  - Blood sodium increased [Unknown]
  - Adrenocortical insufficiency acute [Unknown]
  - Sinusitis [Unknown]
  - Headache [Unknown]
  - Blood corticotrophin increased [Unknown]
  - Pyrexia [Recovered/Resolved]
  - Oropharyngeal pain [Recovering/Resolving]
  - Terminal insomnia [Unknown]
  - Low density lipoprotein increased [Unknown]
  - Sinus congestion [Unknown]
  - Facial pain [Unknown]
  - Feeling abnormal [Unknown]

NARRATIVE: CASE EVENT DATE: 20150821
